FAERS Safety Report 19468621 (Version 2)
Quarter: 2021Q3

REPORT INFORMATION
  Report Type: Spontaneous
  Country: US (occurrence: US)
  Receive Date: 20210628
  Receipt Date: 20210715
  Transmission Date: 20211014
  Serious: No
  Sender: FDA-Public Use
  Company Number: US-TEVA-2021-US-1925814

PATIENT
  Sex: Female

DRUGS (1)
  1. COPAXONE [Suspect]
     Active Substance: GLATIRAMER ACETATE
     Dosage: FORM STRENGTH AND DOSE: UNKNOWN
     Route: 065

REACTIONS (4)
  - Skin disorder [Unknown]
  - Injection site atrophy [Unknown]
  - Anxiety [Unknown]
  - Pain [Unknown]
